FAERS Safety Report 4546753-3 (Version None)
Quarter: 2005Q1

REPORT INFORMATION
  Report Type: 
  Country: None (occurrence: None)
  Receive Date: 20050106
  Receipt Date: 20041028
  Transmission Date: 20050727
  Serious: No
  Sender: FDA-Public Use
  Company Number: FR-ABBOTT-04P-056-0279157-00

PATIENT
  Age: 39 Year
  Sex: Male

DRUGS (3)
  1. DEPAKOTE [Suspect]
     Indication: HYPOMANIA
     Route: 048
     Dates: start: 20040901
  2. ALPRAZOLAM [Interacting]
     Indication: ANXIETY
     Dosage: 3 TO 4 MG
     Route: 048
     Dates: start: 20040901, end: 20041012
  3. ACETAMINOPHEN W/ PROPOXYPHENE HCL [Interacting]
     Indication: BACK PAIN
     Dosage: 860 TO 1290 MG
     Route: 048
     Dates: start: 20041012

REACTIONS (4)
  - ABNORMAL DREAMS [None]
  - BACK PAIN [None]
  - DAYDREAMING [None]
  - DRUG INTERACTION [None]
